FAERS Safety Report 5341720-4 (Version None)
Quarter: 2007Q2

REPORT INFORMATION
  Report Type: 
  Country: None (occurrence: None)
  Receive Date: 20070530
  Receipt Date: 20070514
  Transmission Date: 20071010
  Serious: Yes (Hospitalization)
  Sender: FDA-Public Use
  Company Number: 8024096

PATIENT
  Age: 16 Year
  Sex: Female
  Weight: 52 kg

DRUGS (2)
  1. LEVETIRACETAM [Suspect]
     Indication: EPILEPSY
     Dosage: 750 MG 2/D PO
     Route: 048
     Dates: start: 20061101
  2. VALPROATE SODIUM [Concomitant]

REACTIONS (1)
  - LEUKOPENIA [None]
